FAERS Safety Report 20559638 (Version 1)
Quarter: 2022Q1

REPORT INFORMATION
  Report Type: Spontaneous
  Country: US (occurrence: US)
  Receive Date: 20220307
  Receipt Date: 20220307
  Transmission Date: 20220423
  Serious: No
  Sender: FDA-Public Use
  Company Number: US-ORGANON-O2202USA001996

PATIENT
  Age: 15 Year
  Sex: Female

DRUGS (3)
  1. ELOCON [Suspect]
     Active Substance: MOMETASONE FUROATE
     Indication: Systemic lupus erythematosus
     Dosage: UNK
     Route: 061
  2. HYDROXYCHLOROQUINE [Concomitant]
     Active Substance: HYDROXYCHLOROQUINE
     Indication: Systemic lupus erythematosus
     Dosage: 200 MG DAILY
  3. TACROLIMUS [Concomitant]
     Active Substance: TACROLIMUS
     Indication: Systemic lupus erythematosus
     Dosage: UNK
     Route: 061

REACTIONS (1)
  - Product use in unapproved indication [Unknown]
